FAERS Safety Report 7510724-5 (Version None)
Quarter: 2011Q2

REPORT INFORMATION
  Report Type: 
  Country: None (occurrence: None)
  Receive Date: 20110530
  Receipt Date: 20110516
  Transmission Date: 20111010
  Serious: Yes (Other)
  Sender: FDA-Public Use
  Company Number: PHHY2011DE41798

PATIENT
  Sex: Male

DRUGS (1)
  1. GLEEVEC [Suspect]

REACTIONS (3)
  - NODAL MARGINAL ZONE B-CELL LYMPHOMA [None]
  - LYMPHOPROLIFERATIVE DISORDER [None]
  - NEOPLASM MALIGNANT [None]
